FAERS Safety Report 24104362 (Version 2)
Quarter: 2024Q3

REPORT INFORMATION
  Report Type: Spontaneous
  Country: US (occurrence: None)
  Receive Date: 20240717
  Receipt Date: 20240816
  Transmission Date: 20241016
  Serious: No
  Sender: ASTRAZENECA
  Company Number: 2024A140424

PATIENT
  Age: 23904 Day
  Sex: Male

DRUGS (1)
  1. BREZTRI [Suspect]
     Active Substance: BUDESONIDE\FORMOTEROL\GLYCOPYRROLATE
     Indication: Emphysema
     Route: 055
     Dates: start: 2024

REACTIONS (5)
  - Frustration tolerance decreased [Unknown]
  - Device use issue [Unknown]
  - Incorrect dose administered by device [Unknown]
  - Accidental overdose [Unknown]
  - Device delivery system issue [Unknown]

NARRATIVE: CASE EVENT DATE: 20240601
